FAERS Safety Report 18290212 (Version 1)
Quarter: 2020Q3

REPORT INFORMATION
  Report Type: Spontaneous
  Country: CO (occurrence: CO)
  Receive Date: 20200921
  Receipt Date: 20200921
  Transmission Date: 20201103
  Serious: Yes (Other)
  Sender: FDA-Public Use
  Company Number: CO-PFIZER INC-2020357463

PATIENT
  Age: 87 Year
  Sex: Female

DRUGS (11)
  1. AMLODIPINE [Concomitant]
     Active Substance: AMLODIPINE BESYLATE
     Indication: HYPERTENSION
     Dosage: 5 MG, DAILY
  2. LOSARTAN. [Concomitant]
     Active Substance: LOSARTAN
     Indication: HYPERTENSION
     Dosage: 50 MG, DAILY
  3. HYDROXYCHLOROQUINE [Concomitant]
     Active Substance: HYDROXYCHLOROQUINE
     Indication: RHEUMATOID ARTHRITIS
     Dosage: 200 MG, CYCLIC (FROM MONDAY TO FRIDAY)
  4. GIRALMET [Concomitant]
     Indication: OSTEOPOROSIS POSTMENOPAUSAL
     Dosage: 200 IU, DAILY
  5. METOPROLOL. [Concomitant]
     Active Substance: METOPROLOL
     Indication: HYPERTENSION
     Dosage: 25 MG, 2X/DAY
  6. BIOCALCIUM D [Concomitant]
     Indication: OSTEOPOROSIS POSTMENOPAUSAL
     Dosage: 1 DF, DAILY
  7. LOVASTATIN. [Concomitant]
     Active Substance: LOVASTATIN
     Indication: DYSLIPIDAEMIA
     Dosage: 20 MG, DAILY
  8. NITROFURANTOIN. [Concomitant]
     Active Substance: NITROFURANTOIN
     Dosage: 100 MG, DAILY
  9. TERIPARATIDE [Concomitant]
     Active Substance: TERIPARATIDE
     Indication: OSTEOPOROSIS POSTMENOPAUSAL
     Dosage: 20 UG, DAILY
     Route: 058
     Dates: start: 201605
  10. XELJANZ [Suspect]
     Active Substance: TOFACITINIB CITRATE
     Indication: RHEUMATOID ARTHRITIS
     Dosage: 5 MG, TWICE DAILY
  11. ACETYLSALICYLIC ACID [Concomitant]
     Active Substance: ASPIRIN
     Indication: RHEUMATOID ARTHRITIS
     Dosage: 100 MG, DAILY

REACTIONS (19)
  - Weight decreased [Unknown]
  - Spondylolisthesis [Unknown]
  - Superinfection [Unknown]
  - Osteoarthritis [Unknown]
  - Oral herpes [Unknown]
  - Urinary tract infection [Unknown]
  - Facial paralysis [Unknown]
  - Scoliosis [Unknown]
  - Osteopenia [Unknown]
  - Cardiomegaly [Unknown]
  - Dental restoration failure [Unknown]
  - Arthralgia [Unknown]
  - Osteochondrosis [Unknown]
  - Aortic arteriosclerosis [Unknown]
  - Undifferentiated nasopharyngeal carcinoma [Unknown]
  - Back pain [Unknown]
  - Spinal fracture [Unknown]
  - Spinal osteoarthritis [Unknown]
  - Spinal muscular atrophy [Unknown]

NARRATIVE: CASE EVENT DATE: 2017
